FAERS Safety Report 15954791 (Version 3)
Quarter: 2019Q1

REPORT INFORMATION
  Report Type: Spontaneous
  Country: DE (occurrence: DE)
  Receive Date: 20190213
  Receipt Date: 20190326
  Transmission Date: 20190417
  Serious: Yes (Death, Hospitalization, Other)
  Sender: FDA-Public Use
  Company Number: DE-AUROBINDO-AUR-APL-2019-007192

PATIENT

DRUGS (13)
  1. DOMPERIDON [Suspect]
     Active Substance: DOMPERIDONE
     Indication: NAUSEA
     Dosage: 3 DOSAGE FORM, ONCE A DAY
     Route: 048
     Dates: start: 2015, end: 2018
  2. DIAZEPAM. [Suspect]
     Active Substance: DIAZEPAM
     Indication: PRODUCT USED FOR UNKNOWN INDICATION
     Dosage: UNK
     Route: 065
  3. MOXIFLOXACIN FILM-COATED TABLET [Suspect]
     Active Substance: MOXIFLOXACIN
     Indication: URINARY TRACT INFECTION
     Dosage: 2 TABLETS (MANUFACTURER UNKNOWN) RECEIVED FROM PHYSICIAN AT A HOME VISIT , AFTERWARDS MOXOFLOXACIN H
     Route: 065
     Dates: start: 20181215, end: 201812
  4. ASPIRIN. [Concomitant]
     Active Substance: ASPIRIN
     Indication: ISCHAEMIC HEART DISEASE PROPHYLAXIS
  5. MOXIFLOXACIN HEXAL [Suspect]
     Active Substance: MOXIFLOXACIN HYDROCHLORIDE
     Indication: URINARY TRACT INFECTION
     Dosage: 1600 MILLIGRAM, DAILY
     Route: 048
     Dates: start: 20181215, end: 20181217
  6. DOMPERIDON [Suspect]
     Active Substance: DOMPERIDONE
     Indication: VOMITING
     Dosage: UNK
     Route: 048
     Dates: start: 2015, end: 2018
  7. TORASEMIDE [Concomitant]
     Active Substance: TORSEMIDE
     Indication: HYPERTENSION
     Dosage: 0.25 DOSAGE FORM, ONCE A DAY, 1/4 TABLET QD (MORNING)
     Route: 065
  8. MOXIFLOXACIN HEXAL [Suspect]
     Active Substance: MOXIFLOXACIN HYDROCHLORIDE
     Dosage: 400 MILLIGRAM, DAILY
     Route: 048
     Dates: start: 20181215, end: 20181219
  9. HEPARIN [Concomitant]
     Active Substance: HEPARIN SODIUM
     Indication: PRODUCT USED FOR UNKNOWN INDICATION
     Dosage: 1 DOSAGE FORM, ONCE A DAY, 50000IU AND 750 ML IN ALTERNATION; 0-1-0 (AFTERNOON)
     Route: 065
     Dates: start: 201605
  10. ASPIRIN. [Concomitant]
     Active Substance: ASPIRIN
     Indication: CEREBROVASCULAR ACCIDENT PROPHYLAXIS
     Dosage: 1 DOSAGE FORM, ONCE A DAY, 0-1-0 1 DF, QD (AFTERNOON)
     Route: 065
     Dates: start: 199707
  11. METOHEXAL [Concomitant]
     Active Substance: METOPROLOL
     Indication: HYPERTENSION
     Dosage: UNK, 1/2 TABLET
     Route: 065
  12. OMEP [Concomitant]
     Active Substance: OMEPRAZOLE
     Indication: PRODUCT USED FOR UNKNOWN INDICATION
     Dosage: 20 MILLIGRAM
     Route: 065
  13. METOCLOPRAMIDE. [Concomitant]
     Active Substance: METOCLOPRAMIDE
     Indication: ENTERAL NUTRITION
     Dosage: UNK, ONCE A DAY, LONG-TERM MEDICATION
     Route: 065
     Dates: start: 2016

REACTIONS (18)
  - Crying [Recovering/Resolving]
  - Panic reaction [Unknown]
  - Anxiety disorder [Recovering/Resolving]
  - Heart rate increased [Recovering/Resolving]
  - Hallucination [Recovering/Resolving]
  - Mental disorder [Unknown]
  - Pyrexia [Unknown]
  - Abnormal behaviour [Recovering/Resolving]
  - Confusional state [Unknown]
  - Scatolia [Recovering/Resolving]
  - Drug interaction [Unknown]
  - Pneumonia aspiration [Fatal]
  - Logorrhoea [Recovering/Resolving]
  - Psychomotor hyperactivity [Recovering/Resolving]
  - Oral discharge [Unknown]
  - Cystitis [Recovering/Resolving]
  - Agitation [Recovering/Resolving]
  - Panic attack [Recovering/Resolving]

NARRATIVE: CASE EVENT DATE: 201812
